FAERS Safety Report 8172074-6 (Version None)
Quarter: 2012Q1

REPORT INFORMATION
  Report Type: 
  Country: None (occurrence: None)
  Receive Date: 20120228
  Receipt Date: 20120221
  Transmission Date: 20120608
  Serious: Yes (Hospitalization, Other)
  Sender: FDA-Public Use
  Company Number: US-PFIZER INC-2012032153

PATIENT
  Sex: Female

DRUGS (2)
  1. DILANTIN [Suspect]
     Indication: GRAND MAL CONVULSION
     Dosage: 100MG 3 TABLETS EVERY NIGHT
     Route: 048
     Dates: start: 20080519, end: 20080611
  2. DILANTIN [Suspect]
     Dosage: 100MG 3 CAPSULES EVERY NIGHT, DAILY
     Route: 048
     Dates: start: 20080520, end: 20080611

REACTIONS (1)
  - STEVENS-JOHNSON SYNDROME [None]
